FAERS Safety Report 4456988-6 (Version None)
Quarter: 2004Q3

REPORT INFORMATION
  Report Type: 
  Country: None (occurrence: None)
  Receive Date: 20040923
  Receipt Date: 20040126
  Transmission Date: 20050211
  Serious: Yes (Hospitalization)
  Sender: FDA-Public Use
  Company Number: US-GLAXOSMITHKLINE-A0496915A

PATIENT
  Age: 45 Year
  Sex: Male

DRUGS (4)
  1. AVANDIA [Suspect]
     Indication: DIABETES MELLITUS NON-INSULIN-DEPENDENT
     Dates: start: 20000921, end: 20020101
  2. CELEXA [Concomitant]
     Indication: ILL-DEFINED DISORDER
  3. PROZAC [Concomitant]
  4. VIAGRA [Concomitant]
     Indication: ERECTILE DYSFUNCTION

REACTIONS (36)
  - ANAEMIA [None]
  - ASCITES [None]
  - BLOOD PRESSURE INCREASED [None]
  - CHOLELITHIASIS [None]
  - CRYPTOGENIC CIRRHOSIS [None]
  - ERECTILE DYSFUNCTION [None]
  - EROSIVE OESOPHAGITIS [None]
  - FAECAL OCCULT BLOOD POSITIVE [None]
  - GASTROINTESTINAL EROSION [None]
  - HEPATIC ATROPHY [None]
  - HEPATIC CIRRHOSIS [None]
  - HYPOKALAEMIA [None]
  - ILEUS [None]
  - INTERNATIONAL NORMALISED RATIO INCREASED [None]
  - JAUNDICE [None]
  - LEUKOCYTOSIS [None]
  - LIVER DISORDER [None]
  - LIVER TRANSPLANT [None]
  - PERITONITIS BACTERIAL [None]
  - PITTING OEDEMA [None]
  - PORTAL HYPERTENSION [None]
  - PORTAL VEIN THROMBOSIS [None]
  - PYREXIA [None]
  - RADIUS FRACTURE [None]
  - SKIN BURNING SENSATION [None]
  - SMALL INTESTINAL HAEMORRHAGE [None]
  - SMALL INTESTINAL OBSTRUCTION [None]
  - SPLENIC INFARCTION [None]
  - SPLENOMEGALY [None]
  - STERNAL FRACTURE [None]
  - STREPTOCOCCAL INFECTION [None]
  - THROMBOCYTOPENIA [None]
  - TREATMENT NONCOMPLIANCE [None]
  - TREMOR [None]
  - UPPER RESPIRATORY TRACT INFECTION [None]
  - VARICES OESOPHAGEAL [None]
